FAERS Safety Report 25850509 (Version 1)
Quarter: 2025Q3

REPORT INFORMATION
  Report Type: Spontaneous
  Country: US (occurrence: US)
  Receive Date: 20250926
  Receipt Date: 20250926
  Transmission Date: 20251021
  Serious: No
  Sender: CHATTEM
  Company Number: US-SA-2025SA283791

PATIENT
  Age: 61 Year
  Sex: Female

DRUGS (1)
  1. ALLEGRA [Suspect]
     Active Substance: FEXOFENADINE HYDROCHLORIDE
     Indication: Hypersensitivity
     Dosage: 30 MG, QD (30 MG 1 DOSE EVERY 1 DAY[ ONCE DAILY THE PILL A 60MG IS CUT IN 1/2 TO 30MG.])
     Route: 048
     Dates: start: 20250918, end: 202509

REACTIONS (3)
  - Abdominal pain upper [Recovering/Resolving]
  - Dizziness [Recovering/Resolving]
  - Wrong technique in product usage process [Unknown]

NARRATIVE: CASE EVENT DATE: 20250918
